FAERS Safety Report 10195325 (Version 2)
Quarter: 2014Q2

REPORT INFORMATION
  Report Type: Report from Study
  Country: CA (occurrence: CA)
  Receive Date: 20140526
  Receipt Date: 20140526
  Transmission Date: 20141212
  Serious: Yes (Other)
  Sender: FDA-Public Use
  Company Number: CA-UCBSA-079839

PATIENT
  Age: 31 Year
  Sex: Female
  Weight: 61 kg

DRUGS (6)
  1. CIMZIA [Suspect]
     Indication: JUVENILE IDIOPATHIC ARTHRITIS
     Route: 058
     Dates: start: 20111110, end: 201212
  2. CIMZIA [Suspect]
     Indication: JUVENILE IDIOPATHIC ARTHRITIS
     Dosage: WEEKS 0-2-4
     Route: 058
     Dates: start: 20110929, end: 20111027
  3. ARAVA [Concomitant]
     Indication: JUVENILE IDIOPATHIC ARTHRITIS
     Route: 048
     Dates: start: 2000
  4. PREDNISONE [Concomitant]
     Indication: JUVENILE IDIOPATHIC ARTHRITIS
     Route: 048
     Dates: start: 2005
  5. CIPROLEX [Concomitant]
     Dosage: UNKNOWN DOSE
  6. NAPROSYN [Concomitant]
     Dosage: UNKNOWN DOSE

REACTIONS (5)
  - Fungal infection [Not Recovered/Not Resolved]
  - Blister [Not Recovered/Not Resolved]
  - Ingrowing nail [Not Recovered/Not Resolved]
  - Influenza [Recovered/Resolved]
  - Dermatitis [Unknown]
